FAERS Safety Report 7545345-1 (Version None)
Quarter: 2011Q2

REPORT INFORMATION
  Report Type: 
  Country: None (occurrence: None)
  Receive Date: 20110613
  Receipt Date: 20110613
  Transmission Date: 20111010
  Serious: Yes (Death)
  Sender: FDA-Public Use
  Company Number: None

PATIENT
  Age: 52 Year
  Sex: Female
  Weight: 102.0593 kg

DRUGS (1)
  1. ACTOS [Suspect]
     Indication: DIABETES MELLITUS
     Dosage: 15 MG DAILY PO
     Route: 048
     Dates: start: 20090115, end: 20090123

REACTIONS (5)
  - FOOT FRACTURE [None]
  - FALL [None]
  - LOWER LIMB FRACTURE [None]
  - SPINAL FRACTURE [None]
  - CARDIAC FAILURE CONGESTIVE [None]
